FAERS Safety Report 15553092 (Version 1)
Quarter: 2018Q4

REPORT INFORMATION
  Report Type: Spontaneous
  Country: US (occurrence: US)
  Receive Date: 20181026
  Receipt Date: 20181026
  Transmission Date: 20190205
  Serious: No
  Sender: FDA-Public Use
  Company Number: US-JNJFOC-20181019928

PATIENT
  Age: 74 Year
  Sex: Female

DRUGS (2)
  1. NUEDEXTA [Suspect]
     Active Substance: DEXTROMETHORPHAN HYDROBROMIDE\QUINIDINE SULFATE
     Indication: DEMENTIA
     Dosage: (DEXTROMETHORPHAN HYDROBROMIDE 20 MG + QUINIDINE SULFATE 10 MG)
     Route: 048
     Dates: start: 201802, end: 201808
  2. RISPERDAL [Suspect]
     Active Substance: RISPERIDONE
     Indication: SCHIZOPHRENIA
     Route: 048
     Dates: start: 2018, end: 2018

REACTIONS (6)
  - Somnolence [Unknown]
  - Asthenia [Unknown]
  - Loss of personal independence in daily activities [Unknown]
  - Weight decreased [Unknown]
  - Lethargy [Recovering/Resolving]
  - Extrapyramidal disorder [Recovered/Resolved]
